FAERS Safety Report 7384500-0 (Version None)
Quarter: 2011Q1

REPORT INFORMATION
  Report Type: 
  Country: None (occurrence: None)
  Receive Date: 20110330
  Receipt Date: 20110325
  Transmission Date: 20110831
  Serious: Yes (Other)
  Sender: FDA-Public Use
  Company Number: US-PFIZER INC-2011067242

PATIENT
  Age: 68 Year
  Sex: Female

DRUGS (1)
  1. GLUCOTROL [Suspect]
     Dosage: UNK

REACTIONS (1)
  - LOWER RESPIRATORY TRACT INFECTION [None]
